FAERS Safety Report 11454791 (Version 1)
Quarter: 2015Q3

REPORT INFORMATION
  Report Type: Spontaneous
  Country: US (occurrence: US)
  Receive Date: 20150831
  Receipt Date: 20150831
  Transmission Date: 20151125
  Serious: No
  Sender: FDA-Public Use
  Company Number: US-ELI_LILLY_AND_COMPANY-US201005003916

PATIENT
  Age: 42 Year
  Sex: Female

DRUGS (2)
  1. CYMBALTA [Suspect]
     Active Substance: DULOXETINE HYDROCHLORIDE
     Dosage: 90 MG, UNK
     Dates: start: 200705, end: 20100505
  2. LYRICA [Concomitant]
     Active Substance: PREGABALIN
     Dates: start: 2009

REACTIONS (4)
  - Weight increased [Unknown]
  - Transient acantholytic dermatosis [Unknown]
  - Drug interaction [Unknown]
  - Hyperhidrosis [Unknown]
